FAERS Safety Report 16096001 (Version 1)
Quarter: 2019Q1

REPORT INFORMATION
  Report Type: Spontaneous
  Country: US (occurrence: US)
  Receive Date: 20190320
  Receipt Date: 20190320
  Transmission Date: 20190418
  Serious: No
  Sender: FDA-Public Use
  Company Number: US-TEVA-2019-US-1028070

PATIENT
  Age: 58 Year
  Sex: Female
  Weight: 88 kg

DRUGS (5)
  1. AJOVY [Suspect]
     Active Substance: FREMANEZUMAB-VFRM
     Indication: MIGRAINE
     Route: 058
  2. LEVOTHYROXINE. [Concomitant]
     Active Substance: LEVOTHYROXINE
  3. BOTOX [Concomitant]
     Active Substance: ONABOTULINUMTOXINA
  4. OLANZAPINE. [Concomitant]
     Active Substance: OLANZAPINE
  5. NAPROXEN. [Concomitant]
     Active Substance: NAPROXEN

REACTIONS (2)
  - Migraine [Not Recovered/Not Resolved]
  - Headache [Unknown]
